FAERS Safety Report 10648926 (Version 2)
Quarter: 2020Q3

REPORT INFORMATION
  Report Type: Spontaneous
  Country: PT (occurrence: PT)
  Receive Date: 20141212
  Receipt Date: 20200826
  Transmission Date: 20201102
  Serious: Yes (Death, Hospitalization, Other)
  Sender: FDA-Public Use
  Company Number: PHHY2013PT163318

PATIENT
  Age: 42 Year
  Sex: Male

DRUGS (17)
  1. PIPERACILLIN,TAZOBACTAM [Suspect]
     Active Substance: PIPERACILLIN SODIUM\TAZOBACTAM SODIUM
     Indication: PNEUMONIA
  2. ATOVAQUONE. [Suspect]
     Active Substance: ATOVAQUONE
     Indication: PROPHYLAXIS
     Dosage: UNK
     Route: 065
  3. GRANULOCYTE COLONY STIMULATING FACTOR [Concomitant]
     Active Substance: GRANULOCYTE COLONY-STIMULATING FACTOR NOS
     Indication: APLASIA
     Dosage: UNK
     Route: 065
  4. VANCOMYCIN [Suspect]
     Active Substance: VANCOMYCIN
     Indication: ENTEROCOCCAL INFECTION
     Dosage: UNK
     Route: 065
  5. POSACONAZOLE [Suspect]
     Active Substance: POSACONAZOLE
     Indication: PROPHYLAXIS
     Dosage: UNK
     Route: 065
  6. CICLOSPORIN [Suspect]
     Active Substance: CYCLOSPORINE
     Indication: GRAFT VERSUS HOST DISEASE IN GASTROINTESTINAL TRACT
  7. CASPOFUNGIN [Suspect]
     Active Substance: CASPOFUNGIN
     Indication: SEPTIC SHOCK
  8. CICLOSPORIN [Suspect]
     Active Substance: CYCLOSPORINE
     Indication: CHRONIC GRAFT VERSUS HOST DISEASE IN SKIN
     Dosage: UNK
     Route: 065
  9. CICLOSPORIN [Suspect]
     Active Substance: CYCLOSPORINE
     Indication: CHRONIC GRAFT VERSUS HOST DISEASE IN LIVER
  10. PIPERACILLIN,TAZOBACTAM [Suspect]
     Active Substance: PIPERACILLIN SODIUM\TAZOBACTAM SODIUM
     Indication: SEPTIC SHOCK
     Dosage: UNK
     Route: 065
  11. ACYCLOVIR. [Suspect]
     Active Substance: ACYCLOVIR
     Indication: ENTEROCOCCAL INFECTION
     Dosage: UNK
     Route: 065
  12. CIDOFOVIR. [Suspect]
     Active Substance: CIDOFOVIR
     Indication: PNEUMONIA
     Dosage: UNK
     Route: 065
  13. CIDOFOVIR. [Suspect]
     Active Substance: CIDOFOVIR
     Indication: SEPTIC SHOCK
  14. CASPOFUNGIN [Suspect]
     Active Substance: CASPOFUNGIN
     Indication: PNEUMONIA
     Dosage: UNK
     Route: 065
  15. ATOVAQUONE. [Suspect]
     Active Substance: ATOVAQUONE
     Indication: SEPTIC SHOCK
  16. MEROPENEM. [Suspect]
     Active Substance: MEROPENEM
     Indication: ENTEROCOCCAL INFECTION
     Dosage: UNK
     Route: 065
  17. CUBICIN [Suspect]
     Active Substance: DAPTOMYCIN
     Indication: SEPTIC SHOCK
     Dosage: UNK
     Route: 065

REACTIONS (16)
  - Renal failure [Unknown]
  - Adenovirus infection [Unknown]
  - Type 2 diabetes mellitus [Unknown]
  - Bacteraemia [Unknown]
  - Enterococcal infection [Unknown]
  - Skin lesion [Unknown]
  - Drug resistance [Unknown]
  - Fusarium infection [Unknown]
  - Septic shock [Fatal]
  - Cystitis haemorrhagic [Unknown]
  - Pneumonia [Unknown]
  - Drug ineffective [Unknown]
  - Papule [Unknown]
  - Cytomegalovirus infection reactivation [Unknown]
  - Skin necrosis [Unknown]
  - Enterocolitis [Unknown]
